FAERS Safety Report 4455061-0 (Version None)
Quarter: 2004Q3

REPORT INFORMATION
  Report Type: 
  Country: None (occurrence: None)
  Receive Date: 20040917
  Receipt Date: 20040827
  Transmission Date: 20050211
  Serious: Yes (Other)
  Sender: FDA-Public Use
  Company Number: USA040875121

PATIENT
  Age: 44 Year
  Sex: Female
  Weight: 58 kg

DRUGS (3)
  1. XIGRIS [Suspect]
     Indication: LOCALISED INFECTION
     Dosage: 24 UG/KG/HR
     Dates: start: 20040808, end: 20040810
  2. XIGRIS [Suspect]
     Indication: STAPHYLOCOCCAL INFECTION
     Dosage: 24 UG/KG/HR
     Dates: start: 20040808, end: 20040810
  3. DOPAMINE HCL [Concomitant]

REACTIONS (10)
  - ACTIVATED PARTIAL THROMBOPLASTIN TIME PROLONGED [None]
  - BLOOD FIBRINOGEN INCREASED [None]
  - CATHETER SITE HAEMORRHAGE [None]
  - EPIDERMOLYSIS [None]
  - FIBRIN D DIMER INCREASED [None]
  - HAEMATOCRIT DECREASED [None]
  - HAEMOGLOBIN DECREASED [None]
  - INTERNATIONAL NORMALISED RATIO INCREASED [None]
  - PLATELET COUNT DECREASED [None]
  - PROTHROMBIN TIME PROLONGED [None]
